FAERS Safety Report 8877696 (Version 1)
Quarter: 2012Q4

REPORT INFORMATION
  Report Type: 
  Country: BR (occurrence: BR)
  Receive Date: 20121024
  Receipt Date: 20121024
  Transmission Date: 20130627
  Serious: Yes (Other)
  Sender: FDA-Public Use
  Company Number: PHHY2012BR094764

PATIENT
  Age: 39 Year
  Sex: Female
  Weight: 83 kg

DRUGS (3)
  1. TRILEPTAL [Suspect]
     Indication: BIPOLAR DISORDER
     Dosage: 2 DF, BID (morning and night)
     Route: 048
  2. VENLAFAXINE HYDROCHLORIDE [Suspect]
     Dosage: 75 mg, QD
  3. LORAZEPAM [Suspect]
     Indication: BIPOLAR DISORDER
     Dosage: 2 DF, QD (morning and night)

REACTIONS (11)
  - Irritable bowel syndrome [Unknown]
  - Gastrointestinal disorder [Unknown]
  - Abdominal pain [Recovering/Resolving]
  - Gastrointestinal pain [Unknown]
  - Diarrhoea [Unknown]
  - Decreased appetite [Unknown]
  - Flatulence [Recovering/Resolving]
  - Vomiting [Unknown]
  - Regurgitation [Unknown]
  - Nausea [Unknown]
  - Constipation [Unknown]
